APPROVED DRUG PRODUCT: METAGLIP
Active Ingredient: GLIPIZIDE; METFORMIN HYDROCHLORIDE
Strength: 5MG;500MG **Federal Register determination that product was not discontinued or withdrawn for safety or effectiveness reasons**
Dosage Form/Route: TABLET;ORAL
Application: N021460 | Product #003
Applicant: BRISTOL MYERS SQUIBB CO
Approved: Oct 21, 2002 | RLD: Yes | RS: No | Type: DISCN